FAERS Safety Report 25433943 (Version 1)
Quarter: 2025Q2

REPORT INFORMATION
  Report Type: Spontaneous
  Country: JP (occurrence: JP)
  Receive Date: 20250613
  Receipt Date: 20250613
  Transmission Date: 20250717
  Serious: Yes (Other)
  Sender: VERICEL
  Company Number: JP-VERICEL-JP-VCEL-25-000171

PATIENT
  Age: 89 Year
  Sex: Female

DRUGS (3)
  1. BROMELAINS [Suspect]
     Active Substance: BROMELAINS
     Indication: Product used for unknown indication
     Route: 061
  2. NOREPINEPHRINE BITARTRATE [Concomitant]
     Active Substance: NOREPINEPHRINE BITARTRATE
     Indication: Product used for unknown indication
     Route: 065
  3. VASOPRESSIN [Concomitant]
     Active Substance: VASOPRESSIN
     Indication: Product used for unknown indication
     Route: 065

REACTIONS (2)
  - Distributive shock [Unknown]
  - Pyrexia [Unknown]
